FAERS Safety Report 23897604 (Version 2)
Quarter: 2025Q1

REPORT INFORMATION
  Report Type: Spontaneous
  Country: CA (occurrence: CA)
  Receive Date: 20240524
  Receipt Date: 20250203
  Transmission Date: 20250409
  Serious: Yes (Other)
  Sender: GE HEALTHCARE
  Company Number: CA-GE HEALTHCARE-2024CSU005537

PATIENT
  Age: 74 Year
  Sex: Female

DRUGS (3)
  1. VISIPAQUE [Suspect]
     Active Substance: IODIXANOL
     Indication: Drug provocation test
     Route: 050
  2. VISIPAQUE [Suspect]
     Active Substance: IODIXANOL
     Indication: Drug provocation test
     Route: 050
  3. VISIPAQUE [Suspect]
     Active Substance: IODIXANOL
     Indication: Drug provocation test
     Route: 050

REACTIONS (4)
  - Cutaneous vasculitis [Unknown]
  - Skin burning sensation [Unknown]
  - Purpura [Unknown]
  - Rash erythematous [Unknown]
